FAERS Safety Report 20882323 (Version 1)
Quarter: 2022Q2

REPORT INFORMATION
  Report Type: Spontaneous
  Country: GB (occurrence: GB)
  Receive Date: 20220527
  Receipt Date: 20220527
  Transmission Date: 20220721
  Serious: Yes (Other)
  Sender: FDA-Public Use
  Company Number: GB-CELLTRION INC.-2022GB007400

PATIENT

DRUGS (1)
  1. INFLIXIMAB [Suspect]
     Active Substance: INFLIXIMAB
     Indication: Product used for unknown indication
     Dosage: 120 MILLIGRAM, EVERY OTHER WEEK
     Route: 058

REACTIONS (4)
  - Fall [Unknown]
  - Clavicle fracture [Unknown]
  - Surgery [Unknown]
  - Product dose omission issue [Unknown]
